FAERS Safety Report 20004751 (Version 3)
Quarter: 2022Q1

REPORT INFORMATION
  Report Type: Spontaneous
  Country: JP (occurrence: JP)
  Receive Date: 20211027
  Receipt Date: 20220118
  Transmission Date: 20220423
  Serious: Yes (Death)
  Sender: FDA-Public Use
  Company Number: JP-DSJP-DSJ-2021-132217

PATIENT
  Age: 61 Year
  Sex: Male
  Weight: 59 kg

DRUGS (12)
  1. ENHERTU [Suspect]
     Active Substance: FAM-TRASTUZUMAB DERUXTECAN-NXKI
     Indication: Adenocarcinoma gastric
     Dosage: 5.4 MG/KG, ONCE EVERY 3 WK
     Route: 041
     Dates: start: 20210922, end: 20210922
  2. ENHERTU [Suspect]
     Active Substance: FAM-TRASTUZUMAB DERUXTECAN-NXKI
     Dosage: 5.4 MG/KG, ONCE EVERY 3 WK
     Route: 041
     Dates: start: 20211012, end: 20211012
  3. ENHERTU [Suspect]
     Active Substance: FAM-TRASTUZUMAB DERUXTECAN-NXKI
     Dosage: 5.4 MG/KG, ONCE EVERY 3 WK
     Route: 041
     Dates: start: 20211101, end: 20211101
  4. ENHERTU [Suspect]
     Active Substance: FAM-TRASTUZUMAB DERUXTECAN-NXKI
     Dosage: 5.4 MG/KG, ONCE EVERY 3 WK
     Route: 041
     Dates: start: 20211122, end: 20211122
  5. ALOXI [Concomitant]
     Active Substance: PALONOSETRON HYDROCHLORIDE
     Indication: Adenocarcinoma gastric
     Dosage: 0.75MG/BODY, ONCE EVERY 3 WK
     Route: 042
     Dates: start: 20210803
  6. DEXAMETHASONE SODIUM PHOSPHATE [Concomitant]
     Active Substance: DEXAMETHASONE SODIUM PHOSPHATE
     Indication: Adenocarcinoma gastric
     Dosage: 9.9MG/BODY, 3TIMES/3WEEKS
     Route: 042
     Dates: start: 20210803
  7. FOSAPREPITANT [Concomitant]
     Active Substance: FOSAPREPITANT
     Indication: Adenocarcinoma gastric
     Dosage: 150MG/BODY, ONCE EVERY 3 WK
     Route: 042
     Dates: start: 20211101
  8. NITRAZEPAM [Concomitant]
     Active Substance: NITRAZEPAM
     Indication: Adenocarcinoma gastric
     Dosage: 5MG/BODY, QD
     Route: 048
     Dates: start: 20211012
  9. DISOPYRAMIDE PHOSPHATE [Concomitant]
     Active Substance: DISOPYRAMIDE PHOSPHATE
     Indication: Adenocarcinoma gastric
     Dosage: 150MG/BODY, BID
     Route: 048
     Dates: start: 20150317
  10. LANSOPRAZOLE [Concomitant]
     Active Substance: LANSOPRAZOLE
     Indication: Adenocarcinoma gastric
     Dosage: 15MG/BODY, QD
     Route: 048
     Dates: start: 20210921
  11. LOPERAMIDE HYDROCHLORIDE [Concomitant]
     Active Substance: LOPERAMIDE HYDROCHLORIDE
     Indication: Adenocarcinoma gastric
     Dosage: 1MG/BODY, QD
     Route: 048
     Dates: start: 20210921
  12. ZOLPIDEM [Concomitant]
     Active Substance: ZOLPIDEM TARTRATE
     Indication: Adenocarcinoma gastric
     Dosage: 10MG/BODY, QD
     Route: 048
     Dates: start: 20210517

REACTIONS (5)
  - Death [Fatal]
  - Malaise [Recovered/Resolved]
  - White blood cell count decreased [Recovered/Resolved]
  - Neutrophil count decreased [Recovered/Resolved]
  - Underdose [Unknown]

NARRATIVE: CASE EVENT DATE: 20210901
